FAERS Safety Report 6634805-3 (Version None)
Quarter: 2010Q1

REPORT INFORMATION
  Report Type: 
  Country: None (occurrence: None)
  Receive Date: 20100315
  Receipt Date: 20100302
  Transmission Date: 20100710
  Serious: Yes (Other)
  Sender: FDA-Public Use
  Company Number: US-PFIZER INC-2010027619

PATIENT
  Sex: Female

DRUGS (1)
  1. GEODON [Suspect]
     Dosage: 40 MG, UNK
     Dates: end: 20100201

REACTIONS (2)
  - DROOLING [None]
  - GAIT DISTURBANCE [None]
